FAERS Safety Report 16744453 (Version 3)
Quarter: 2019Q4

REPORT INFORMATION
  Report Type: Report from Study
  Country: US (occurrence: US)
  Receive Date: 20190827
  Receipt Date: 20191120
  Transmission Date: 20200122
  Serious: Yes (Hospitalization, Other)
  Sender: FDA-Public Use
  Company Number: US-ASTELLAS-2019US008234

PATIENT
  Age: 72 Year
  Sex: Male

DRUGS (2)
  1. ENZALUTAMIDE [Suspect]
     Active Substance: ENZALUTAMIDE
     Route: 048
  2. ENZALUTAMIDE [Suspect]
     Active Substance: ENZALUTAMIDE
     Indication: PROSTATE CANCER
     Route: 048
     Dates: start: 20190205, end: 20190815

REACTIONS (9)
  - Swelling face [Not Recovered/Not Resolved]
  - Pain in jaw [Unknown]
  - Feeling abnormal [Not Recovered/Not Resolved]
  - Hyperaesthesia teeth [Unknown]
  - Eye pain [Unknown]
  - Fall [Unknown]
  - Osteomyelitis [Unknown]
  - Salivary gland enlargement [Not Recovered/Not Resolved]
  - Fatigue [Unknown]

NARRATIVE: CASE EVENT DATE: 2018
